FAERS Safety Report 7421662-0 (Version None)
Quarter: 2011Q2

REPORT INFORMATION
  Report Type: 
  Country: None (occurrence: None)
  Receive Date: 20110418
  Receipt Date: 20110405
  Transmission Date: 20111010
  Serious: Yes (Hospitalization, Other)
  Sender: FDA-Public Use
  Company Number: JP-JNJFOC-20101201033

PATIENT
  Sex: Male
  Weight: 61 kg

DRUGS (8)
  1. OMEPRAZOLE [Concomitant]
     Indication: REFLUX OESOPHAGITIS
     Route: 048
  2. PENTASA [Concomitant]
     Indication: CROHN'S DISEASE
     Route: 048
  3. REMICADE [Suspect]
     Route: 042
  4. REMICADE [Suspect]
     Indication: CROHN'S DISEASE
     Route: 042
  5. REMICADE [Suspect]
     Route: 042
  6. AMLODIN [Concomitant]
     Indication: HYPERTENSION
     Route: 048
  7. PREDONINE [Concomitant]
     Indication: CROHN'S DISEASE
     Route: 048
  8. REMICADE [Suspect]
     Route: 042

REACTIONS (2)
  - MELAENA [None]
  - INTERSTITIAL LUNG DISEASE [None]
